FAERS Safety Report 21918475 (Version 2)
Quarter: 2023Q1

REPORT INFORMATION
  Report Type: Spontaneous
  Country: IT (occurrence: IT)
  Receive Date: 20230127
  Receipt Date: 20230331
  Transmission Date: 20230417
  Serious: Yes (Other)
  Sender: FDA-Public Use
  Company Number: IT-ALNYLAM PHARMACEUTICALS, INC.-ALN-2023-000295

PATIENT

DRUGS (31)
  1. GIVLAARI [Suspect]
     Active Substance: GIVOSIRAN SODIUM
     Indication: Porphyria acute
     Dosage: 2.5 MILLIGRAM/KILOGRAM
     Route: 058
     Dates: start: 20230105, end: 20230106
  2. GIVLAARI [Suspect]
     Active Substance: GIVOSIRAN SODIUM
     Dosage: 2.5 MILLIGRAM/KILOGRAM
     Route: 058
     Dates: start: 20221205
  3. GIVLAARI [Suspect]
     Active Substance: GIVOSIRAN SODIUM
     Dosage: 2.5 MILLIGRAM/KILOGRAM
     Route: 058
     Dates: start: 20221106
  4. GIVLAARI [Suspect]
     Active Substance: GIVOSIRAN SODIUM
     Dosage: 2.5 MILLIGRAM/KILOGRAM
     Route: 058
     Dates: start: 20221006, end: 20221006
  5. PANTOPRAZOLE [Concomitant]
     Active Substance: PANTOPRAZOLE
     Indication: Product used for unknown indication
     Dosage: 20 MILLIGRAM, QD
     Route: 042
  6. CERNEVIT [Concomitant]
     Active Substance: VITAMINS
     Indication: Product used for unknown indication
     Dosage: 1 VIAL, QD
     Route: 042
  7. ELECTROLYTES NOS\MINERALS\SORBITOL [Concomitant]
     Active Substance: ELECTROLYTES NOS\MINERALS\SORBITOL
     Indication: Product used for unknown indication
     Dosage: 1 VIAL, QOD
     Route: 042
  8. CALCIFEDIOL [Concomitant]
     Active Substance: CALCIFEDIOL
     Indication: Product used for unknown indication
     Dosage: 10 DROP, QD
     Route: 060
  9. Elopram [Concomitant]
     Indication: Product used for unknown indication
     Dosage: 10 DROP, QD
     Route: 042
  10. XANAX [Concomitant]
     Active Substance: ALPRAZOLAM
     Indication: Product used for unknown indication
     Dosage: 5 DROP, BID
     Route: 060
  11. PREGABALIN [Concomitant]
     Active Substance: PREGABALIN
     Indication: Product used for unknown indication
     Dosage: 100 MILLIGRAM, BID
  12. PREDNISONE [Concomitant]
     Active Substance: PREDNISONE
     Indication: Product used for unknown indication
     Dosage: 5 MILLIGRAM, QD
     Route: 065
  13. NORMOCIS [Concomitant]
     Indication: Product used for unknown indication
     Dosage: 400 MICROGRAM, QD
     Route: 065
  14. Folineed [Concomitant]
     Indication: Product used for unknown indication
     Dosage: 7.5 MILLIGRAM, QD
     Route: 065
  15. MELATONIN [Concomitant]
     Active Substance: MELATONIN
     Indication: Product used for unknown indication
     Dosage: 3 MILLIGRAM, QD
  16. ENOXAPARIN [Concomitant]
     Active Substance: ENOXAPARIN
     Indication: Product used for unknown indication
     Dosage: 6000 INTERNATIONAL UNIT, QD
     Route: 058
  17. AMINO ACIDS\DEXTROSE\ELECTROLYTES NOS\SOYBEAN OIL [Concomitant]
     Active Substance: AMINO ACIDS\DEXTROSE\ELECTROLYTES NOS\SOYBEAN OIL
     Indication: Product used for unknown indication
     Dosage: 1500 MILLILITER, QD
     Route: 042
  18. AMINO ACIDS, SOURCE UNSPECIFIED [Concomitant]
     Active Substance: AMINO ACIDS, SOURCE UNSPECIFIED
     Indication: Product used for unknown indication
     Dosage: 250 MILLILITER, QD
     Route: 042
  19. PROPOFOL [Concomitant]
     Active Substance: PROPOFOL
     Indication: Product used for unknown indication
     Dosage: 2 PERCENT, 10 HOUR NIGHT
     Route: 042
  20. NOVASOURCE RENAL [Concomitant]
     Indication: Product used for unknown indication
     Dosage: 500 MILLILITER, QD
     Dates: end: 20230113
  21. PEPTAMEN [Concomitant]
     Indication: Product used for unknown indication
     Dosage: 1000 MILLILITER, QD
     Dates: end: 20230113
  22. PIPERACILLIN AND TAZOBACTAM [Concomitant]
     Active Substance: PIPERACILLIN SODIUM\TAZOBACTAM SODIUM
     Indication: Product used for unknown indication
     Dosage: UNK
     Route: 042
     Dates: start: 20230111, end: 20230113
  23. TIGECYCLINE [Concomitant]
     Active Substance: TIGECYCLINE
     Indication: Product used for unknown indication
     Dosage: 50 MILLIGRAM, BID
     Route: 042
     Dates: start: 20230111, end: 20230123
  24. AVIBACTAM SODIUM\CEFTAZIDIME [Concomitant]
     Active Substance: AVIBACTAM SODIUM\CEFTAZIDIME
     Indication: Product used for unknown indication
     Dosage: 2GR/0,5GR, TID
     Route: 042
     Dates: start: 20230111, end: 20230123
  25. DAPTOMYCIN [Concomitant]
     Active Substance: DAPTOMYCIN
     Indication: Product used for unknown indication
     Dosage: 750 MILLIGRAM
     Route: 042
     Dates: start: 20230111, end: 20230123
  26. DAPTOMYCIN [Concomitant]
     Active Substance: DAPTOMYCIN
     Dosage: 350 MILLIGRAM, QD
     Route: 042
     Dates: start: 20230212, end: 20230228
  27. MEROPENEM [Concomitant]
     Active Substance: MEROPENEM
     Indication: Product used for unknown indication
     Dosage: 1 GRAM, BID
     Route: 042
     Dates: start: 20230223, end: 20230306
  28. MEROPENEM [Concomitant]
     Active Substance: MEROPENEM
     Dosage: 1 GRAM
     Route: 042
  29. Caspofungina [Concomitant]
     Indication: Product used for unknown indication
     Dosage: 50 MILLIGRAM, QD
     Route: 042
     Dates: start: 20230117, end: 20230123
  30. Caspofungina [Concomitant]
     Dosage: 35 MILLIGRAM, QD
     Route: 042
     Dates: start: 20230211, end: 20230221
  31. MESALAMINE [Concomitant]
     Active Substance: MESALAMINE
     Indication: Product used for unknown indication
     Dosage: UNK
     Route: 065

REACTIONS (15)
  - Sepsis [Recovering/Resolving]
  - Septic shock [Unknown]
  - Oedematous pancreatitis [Unknown]
  - Blood bilirubin increased [Unknown]
  - Transaminases increased [Recovering/Resolving]
  - Blood alkaline phosphatase increased [Unknown]
  - Gamma-glutamyltransferase increased [Unknown]
  - Cytomegalovirus viraemia [Unknown]
  - Diarrhoea [Unknown]
  - Decubitus ulcer [Unknown]
  - Culture urine positive [Unknown]
  - Norovirus test positive [Unknown]
  - Cholestatic liver injury [Unknown]
  - Hepatic steatosis [Unknown]
  - Cholangitis [Unknown]

NARRATIVE: CASE EVENT DATE: 20221208
